FAERS Safety Report 9336564 (Version 1)
Quarter: 2013Q2

REPORT INFORMATION
  Report Type: Spontaneous
  Country: US (occurrence: US)
  Receive Date: 20130607
  Receipt Date: 20130607
  Transmission Date: 20140414
  Serious: No
  Sender: FDA-Public Use
  Company Number: US-PFIZER INC-2013148658

PATIENT
  Age: 49 Year
  Sex: Female
  Weight: 63.49 kg

DRUGS (9)
  1. CHANTIX [Suspect]
     Indication: SMOKING CESSATION THERAPY
     Dosage: UNK
     Route: 048
     Dates: start: 201305
  2. LOPID [Concomitant]
     Dosage: UNK
  3. LITHIUM [Concomitant]
     Dosage: UNK
  4. SPIRIVA [Concomitant]
     Dosage: UNK
  5. DEXILANT [Concomitant]
     Dosage: UNK
  6. XANAX [Concomitant]
     Dosage: UNK
  7. SEROQUEL [Concomitant]
     Dosage: UNK
  8. ADVAIR [Concomitant]
     Dosage: UNK
  9. LEVOTHYROXINE [Concomitant]
     Dosage: UNK

REACTIONS (2)
  - Nausea [Unknown]
  - Cough [Unknown]
